FAERS Safety Report 4734938-2 (Version None)
Quarter: 2005Q3

REPORT INFORMATION
  Report Type: 
  Country: None (occurrence: None)
  Receive Date: 20050729
  Receipt Date: 20050708
  Transmission Date: 20060218
  Serious: Yes (Other)
  Sender: FDA-Public Use
  Company Number: USA0507102539

PATIENT
  Age: 33 Year
  Sex: Female

DRUGS (3)
  1. STRATTERA [Suspect]
     Dosage: 80 MG
  2. LITHIUM [Concomitant]
  3. ABILIFY [Concomitant]

REACTIONS (1)
  - ALANINE AMINOTRANSFERASE INCREASED [None]
